FAERS Safety Report 24942364 (Version 1)
Quarter: 2025Q1

REPORT INFORMATION
  Report Type: Report from Study
  Country: US (occurrence: US)
  Receive Date: 20250207
  Receipt Date: 20250207
  Transmission Date: 20250408
  Serious: Yes (Hospitalization)
  Sender: ABBVIE
  Company Number: US-ABBVIE-6116930

PATIENT
  Sex: Female

DRUGS (1)
  1. CREON [Suspect]
     Active Substance: PANCRELIPASE AMYLASE\PANCRELIPASE LIPASE\PANCRELIPASE PROTEASE
     Indication: Pancreatic failure
     Route: 048
     Dates: start: 20240717

REACTIONS (6)
  - Intestinal obstruction [Recovering/Resolving]
  - Urinary retention [Recovering/Resolving]
  - Fall [Unknown]
  - Blood potassium increased [Recovering/Resolving]
  - Asthenia [Unknown]
  - Middle insomnia [Unknown]
